FAERS Safety Report 8185925-6 (Version None)
Quarter: 2012Q1

REPORT INFORMATION
  Report Type: 
  Country: None (occurrence: None)
  Receive Date: 20120305
  Receipt Date: 20120224
  Transmission Date: 20120608
  Serious: Yes (Other)
  Sender: FDA-Public Use
  Company Number: US-ASTRAZENECA-2011SE73796

PATIENT
  Age: 62 Year
  Sex: Female
  Weight: 73 kg

DRUGS (3)
  1. PRILOSEC [Suspect]
     Route: 048
  2. NEXIUM [Suspect]
     Indication: GASTROOESOPHAGEAL REFLUX DISEASE
     Dosage: ONE PER DAY
     Route: 048
     Dates: start: 20080101
  3. AMLODIPINE [Suspect]
     Route: 065
     Dates: start: 20111201, end: 20111215

REACTIONS (3)
  - NEOPLASM MALIGNANT [None]
  - DRUG INEFFECTIVE [None]
  - STOMATITIS [None]
